FAERS Safety Report 6232216-6 (Version None)
Quarter: 2009Q2

REPORT INFORMATION
  Report Type: 
  Country: None (occurrence: None)
  Receive Date: 20090615
  Receipt Date: 20090602
  Transmission Date: 20091009
  Serious: Yes (Other)
  Sender: FDA-Public Use
  Company Number: US-WYE-H09568709

PATIENT
  Age: 39 Year
  Sex: Female

DRUGS (4)
  1. ZOSYN [Suspect]
     Indication: NEUTROPENIA
  2. VANCOMYCIN [Concomitant]
  3. METRONIDAZOLE (METRONIDAZOLE) [Concomitant]
  4. VORICONAZOLE (VORICONAZOLE) [Concomitant]

REACTIONS (5)
  - ENTEROCOLITIS HAEMORRHAGIC [None]
  - KLEBSIELLA INFECTION [None]
  - KLEBSIELLA SEPSIS [None]
  - OVERGROWTH BACTERIAL [None]
  - PATHOGEN RESISTANCE [None]
